FAERS Safety Report 9548807 (Version 1)
Quarter: 2013Q2

REPORT INFORMATION
  Report Type: Spontaneous
  Country: US (occurrence: None)
  Receive Date: 20130626
  Receipt Date: 20130626
  Transmission Date: 20140414
  Serious: Yes (Hospitalization)
  Sender: FDA-Public Use
  Company Number: 243598

PATIENT
  Age: 15 Year
  Sex: Female
  Weight: 72.8 kg

DRUGS (4)
  1. CYTARABINE INJECTION (CYTARABINE) [Suspect]
     Indication: ACUTE MYELOID LEUKAEMIA
     Route: 037
     Dates: start: 20090206, end: 20090210
  2. CLOFARABINE [Suspect]
     Indication: PRODUCT USED FOR UNKNOWN INDICATION
     Dates: start: 20090401, end: 20090405
  3. IDARUBICIN [Suspect]
     Indication: ACUTE MYELOID LEUKAEMIA
     Dates: start: 20090207, end: 20090209
  4. INVESTIGATIONAL DRUG [Suspect]
     Indication: ACUTE MYELOID LEUKAEMIA
     Dates: start: 20090210, end: 20090306

REACTIONS (1)
  - Enterococcal infection [None]
